APPROVED DRUG PRODUCT: CLOBETASOL PROPIONATE
Active Ingredient: CLOBETASOL PROPIONATE
Strength: 0.05%
Dosage Form/Route: SOLUTION;TOPICAL
Application: A211240 | Product #001 | TE Code: AT
Applicant: QUAGEN PHARMACEUTICALS LLC
Approved: Feb 17, 2022 | RLD: No | RS: No | Type: RX